FAERS Safety Report 10915370 (Version 6)
Quarter: 2017Q3

REPORT INFORMATION
  Report Type: Report from Study
  Country: CA (occurrence: CA)
  Receive Date: 20150316
  Receipt Date: 20170808
  Transmission Date: 20171127
  Serious: Yes (Death, Hospitalization, Other)
  Sender: FDA-Public Use
  Company Number: CA-009507513-1503CAN004515

PATIENT
  Age: 69 Year
  Sex: Male
  Weight: 90 kg

DRUGS (17)
  1. CLOXACILLIN [Concomitant]
     Active Substance: CLOXACILLIN
     Indication: ANAEMIA
     Dosage: 2 G, Q4H
     Route: 042
  2. SEPTRA [Concomitant]
     Active Substance: SULFAMETHOXAZOLE\TRIMETHOPRIM
     Indication: PNEUMONIA
     Dosage: 40 ML, Q6H
     Route: 042
  3. DECADRON [Concomitant]
     Active Substance: DEXAMETHASONE
     Indication: BRAIN NEOPLASM
     Dosage: NASOGASTRIC TUBE (NG), 6 MG, DAILY
  4. FLOVENT [Concomitant]
     Active Substance: FLUTICASONE PROPIONATE
     Indication: ASTHMA
  5. INSULIN [Concomitant]
     Active Substance: INSULIN NOS
     Indication: DIABETES MELLITUS
  6. DIGOXIN. [Concomitant]
     Active Substance: DIGOXIN
     Indication: ATRIAL FIBRILLATION
     Dosage: NASOGASTRIC TUBE (NG), 25 MG, DAILY
  7. METOPROLOL. [Concomitant]
     Active Substance: METOPROLOL
     Indication: HYPERTENSION
     Dosage: NASOGASTRIC TUBE (NG), 25 MG, Q12H
  8. FLAGYL [Concomitant]
     Active Substance: METRONIDAZOLE\METRONIDAZOLE HYDROCHLORIDE
     Indication: CLOSTRIDIUM DIFFICILE INFECTION
     Dosage: 500 MG, Q8H
  9. POTASSIUM CHLORIDE. [Concomitant]
     Active Substance: POTASSIUM CHLORIDE
     Dosage: NASOGASTRICTUBE (NG), 20 MMOL, Q12H
  10. PREVACID [Concomitant]
     Active Substance: LANSOPRAZOLE
     Dosage: NASOGASTRIC TUBE (NG), 30 MG, DAILY
  11. VALPROIC ACID. [Concomitant]
     Active Substance: VALPROIC ACID
     Indication: SEIZURE
     Dosage: NASOGASTRIC TUBE (NG), 875 MG, BID
  12. IVERMECTIN. [Suspect]
     Active Substance: IVERMECTIN
     Indication: STRONGYLOIDIASIS
     Dosage: 18 MG DAILY(200MICRO-G/KG), NASOGASTRIC TUBE (NG) OR ORAL
     Dates: start: 20150306, end: 20150308
  13. FRAGMIN [Concomitant]
     Active Substance: DALTEPARIN SODIUM
     Indication: THROMBOSIS PROPHYLAXIS
     Dosage: 5000 CT, DAILY
     Route: 058
  14. DIAMOX SEQUELS [Concomitant]
     Active Substance: ACETAZOLAMIDE
     Dosage: 250 MG, NASOGASTRIC TUBE (NG), DAILY
  15. CLOXACILLIN [Concomitant]
     Active Substance: CLOXACILLIN
     Indication: SEPSIS
  16. LASIX [Concomitant]
     Active Substance: FUROSEMIDE
     Indication: HYPERTENSION
     Dosage: 40 MG, Q8H
     Route: 042
  17. PROPOFOL. [Concomitant]
     Active Substance: PROPOFOL
     Dosage: TITRATED
     Route: 042

REACTIONS (3)
  - Incorrect route of drug administration [Unknown]
  - Pneumonia [Fatal]
  - Glioblastoma [Fatal]

NARRATIVE: CASE EVENT DATE: 201503
